FAERS Safety Report 19305332 (Version 1)
Quarter: 2021Q2

REPORT INFORMATION
  Report Type: Spontaneous
  Country: JP (occurrence: JP)
  Receive Date: 20210525
  Receipt Date: 20210525
  Transmission Date: 20210717
  Serious: Yes (Other)
  Sender: FDA-Public Use
  Company Number: NVSJ2021JP008002

PATIENT
  Age: 40 Year
  Sex: Female

DRUGS (1)
  1. PARLODEL [Suspect]
     Active Substance: BROMOCRIPTINE MESYLATE
     Indication: PERIPARTUM CARDIOMYOPATHY
     Dosage: 5 MG
     Route: 048

REACTIONS (1)
  - Electrocardiogram QT prolonged [Unknown]
